FAERS Safety Report 25034365 (Version 1)
Quarter: 2025Q1

REPORT INFORMATION
  Report Type: Spontaneous
  Country: US (occurrence: US)
  Receive Date: 20250304
  Receipt Date: 20250304
  Transmission Date: 20250409
  Serious: No
  Sender: JOHNSON AND JOHNSON
  Company Number: US-COLLEGIUM PHARMACEUTICAL, INC.-20250201761

PATIENT
  Sex: Female

DRUGS (1)
  1. NUCYNTA ER [Suspect]
     Active Substance: TAPENTADOL HYDROCHLORIDE
     Indication: Pain
     Dosage: UNK UNK, 2/DAY
     Dates: start: 2012, end: 20250206

REACTIONS (2)
  - Inability to afford medication [Unknown]
  - Pain [Unknown]

NARRATIVE: CASE EVENT DATE: 20250206
